FAERS Safety Report 4634129-X (Version None)
Quarter: 2005Q2

REPORT INFORMATION
  Report Type: 
  Country: None (occurrence: None)
  Receive Date: 20050413
  Receipt Date: 20050314
  Transmission Date: 20051028
  Serious: Yes (Other)
  Sender: FDA-Public Use
  Company Number: DE-GLAXOSMITHKLINE-D0046149A

PATIENT
  Age: 65 Year
  Sex: Female

DRUGS (9)
  1. AVANDAMET [Suspect]
     Indication: DIABETES MELLITUS
     Dosage: 1TAB TWICE PER DAY
     Route: 065
     Dates: start: 20050222
  2. INSULIN [Concomitant]
     Indication: DIABETES MELLITUS
     Dosage: 11IU PER DAY
     Route: 065
  3. ASPIRIN [Concomitant]
     Dosage: 100MG UNKNOWN
     Route: 065
  4. CONCOR [Concomitant]
     Dosage: 5MG UNKNOWN
     Route: 065
     Dates: start: 20050101
  5. ACE INHIBITOR [Concomitant]
     Route: 065
  6. RANITIDINE [Concomitant]
     Dosage: 150MG UNKNOWN
     Route: 065
  7. EZETROL [Concomitant]
     Dosage: 10MG UNKNOWN
     Route: 065
  8. SIMVASTATIN [Concomitant]
     Dosage: 10MG UNKNOWN
     Route: 065
  9. EUTHYROX [Concomitant]
     Dosage: 75UG UNKNOWN
     Route: 065

REACTIONS (7)
  - ABDOMINAL DISCOMFORT [None]
  - CHILLS [None]
  - GASTRIC DISORDER [None]
  - GASTROINTESTINAL DISORDER [None]
  - HYPOGLYCAEMIA [None]
  - OEDEMA [None]
  - WEIGHT INCREASED [None]
